FAERS Safety Report 25230670 (Version 1)
Quarter: 2025Q2

REPORT INFORMATION
  Report Type: Spontaneous
  Country: US (occurrence: US)
  Receive Date: 20250423
  Receipt Date: 20250423
  Transmission Date: 20250716
  Serious: No
  Sender: MISSION PHARMACAL COMPANY
  Company Number: US-Mission Pharmacal Company-2175428

PATIENT
  Age: 58 Year
  Sex: Female

DRUGS (15)
  1. THIOLA EC [Suspect]
     Active Substance: TIOPRONIN
     Indication: Cystinuria
     Dates: start: 20211013
  2. THIOLA EC [Suspect]
     Active Substance: TIOPRONIN
     Dates: start: 20210715, end: 20211012
  3. PROVIGIL [Concomitant]
     Active Substance: MODAFINIL
  4. ATROVENT HFA [Concomitant]
     Active Substance: IPRATROPIUM BROMIDE
  5. METOPROLOL TARTRATE [Concomitant]
     Active Substance: METOPROLOL TARTRATE
  6. MOUNJARO [Concomitant]
     Active Substance: TIRZEPATIDE
  7. POTASSIUM CHLORIDE EXTENDED RELEASE [Concomitant]
     Active Substance: POTASSIUM CHLORIDE
  8. IBUPROFEN [Concomitant]
     Active Substance: IBUPROFEN
  9. FLOMAX [Concomitant]
     Active Substance: TAMSULOSIN HYDROCHLORIDE
  10. ZOFRAN [Concomitant]
     Active Substance: ONDANSETRON HYDROCHLORIDE
  11. VITAMIN B [Concomitant]
     Active Substance: VITAMIN B
  12. VITAMIN D [Concomitant]
     Active Substance: VITAMIN D NOS
  13. MORPHINE [Concomitant]
     Active Substance: MORPHINE
  14. LEXAPRO [Concomitant]
     Active Substance: ESCITALOPRAM OXALATE
  15. HYDROCODONE BITARTRATE AND ACETAMINOPHEN [Concomitant]
     Active Substance: ACETAMINOPHEN\HYDROCODONE BITARTRATE

REACTIONS (2)
  - Fatigue [Unknown]
  - Myalgia [Unknown]
